FAERS Safety Report 15273271 (Version 1)
Quarter: 2018Q3

REPORT INFORMATION
  Report Type: Spontaneous
  Country: KR (occurrence: KR)
  Receive Date: 20180813
  Receipt Date: 20180813
  Transmission Date: 20181010
  Serious: Yes (Other)
  Sender: FDA-Public Use
  Company Number: KR-009507513-1808KOR003130

PATIENT
  Sex: Female

DRUGS (40)
  1. ARONAMIN C PLUS [Concomitant]
     Dosage: UNK
     Dates: start: 20180525, end: 20180629
  2. MACPERAN [Concomitant]
     Active Substance: METOCLOPRAMIDE HYDROCHLORIDE
     Dosage: UNK
     Dates: start: 20180531
  3. VASOPRESSIN. [Concomitant]
     Active Substance: VASOPRESSIN
     Dosage: STRENGTH: 20 UNITS/L
     Dates: start: 20180602
  4. SODIUM CHLORIDE. [Concomitant]
     Active Substance: SODIUM CHLORIDE
     Dosage: 50 ML
     Dates: start: 20180522, end: 20180729
  5. DEXTROSE. [Concomitant]
     Active Substance: DEXTROSE
     Dosage: 100 ML, UNK
     Dates: start: 20180430, end: 20180606
  6. MEROPENEM. [Concomitant]
     Active Substance: MEROPENEM
     Dosage: UNK
     Dates: start: 20180504, end: 20180707
  7. MEROPENEM. [Concomitant]
     Active Substance: MEROPENEM
     Dosage: UNK
     Dates: start: 20180502, end: 20180729
  8. KEYTRUDA [Suspect]
     Active Substance: PEMBROLIZUMAB
     Indication: CHOLANGIOCARCINOMA
     Dosage: UNK
     Dates: start: 20180621
  9. MEGACE F [Concomitant]
     Dosage: UNK
     Dates: start: 20180531
  10. ESROBAN [Concomitant]
     Dosage: UNK
     Dates: start: 20180527, end: 20180611
  11. ALBUMIN TANNATE [Concomitant]
     Active Substance: ALBUMIN BOVINE\TANNIC ACID
     Dosage: UNK
     Dates: start: 20180430, end: 20180723
  12. SODIUM CHLORIDE. [Concomitant]
     Active Substance: SODIUM CHLORIDE
     Dosage: 1000 ML
     Dates: start: 20180509, end: 20180707
  13. SODIUM CHLORIDE. [Concomitant]
     Active Substance: SODIUM CHLORIDE
     Dosage: 50 ML
     Dates: start: 20180521, end: 20180614
  14. MEROPENEM. [Concomitant]
     Active Substance: MEROPENEM
     Dosage: UNK
     Dates: start: 20180502, end: 20180707
  15. KEYTRUDA [Suspect]
     Active Substance: PEMBROLIZUMAB
     Dosage: UNK
     Dates: start: 2018
  16. POTASSIUM CHLORIDE. [Concomitant]
     Active Substance: POTASSIUM CHLORIDE
     Dosage: UNK
     Dates: start: 20180604
  17. MAGO [Concomitant]
     Dosage: UNK
     Dates: start: 20180430, end: 20180726
  18. MAGO [Concomitant]
     Dosage: UNK
     Dates: start: 20180430, end: 20180727
  19. MAGO [Concomitant]
     Dosage: UNK
     Dates: start: 20180508, end: 20180730
  20. DEXTROSE. [Concomitant]
     Active Substance: DEXTROSE
     Dosage: 500 ML, UNK
     Dates: start: 20180502, end: 20180729
  21. TARASYN [Concomitant]
     Dosage: 30 MG/ML
     Dates: start: 20180501
  22. CLAFORAN [Concomitant]
     Active Substance: CEFOTAXIME SODIUM
     Dosage: UNK
     Dates: start: 20180501
  23. CLAFORAN [Concomitant]
     Active Substance: CEFOTAXIME SODIUM
     Dosage: UNK
     Dates: start: 20180502
  24. VANCOMYCIN HYDROCHLORIDE. [Concomitant]
     Active Substance: VANCOMYCIN HYDROCHLORIDE
     Dosage: UNK
     Dates: start: 20180512, end: 20180727
  25. VANCOMYCIN HYDROCHLORIDE. [Concomitant]
     Active Substance: VANCOMYCIN HYDROCHLORIDE
     Dosage: UNK
     Dates: start: 20180513, end: 20180725
  26. MORPHINE HCL JEIL [Concomitant]
     Dosage: UNK
     Dates: start: 20180501, end: 20180706
  27. DUPHALAC [Concomitant]
     Active Substance: LACTULOSE
     Dosage: UNK
     Dates: start: 20180620
  28. DEXTROSE. [Concomitant]
     Active Substance: DEXTROSE
     Dosage: 200 ML
     Dates: start: 20180602
  29. MACPERAN [Concomitant]
     Active Substance: METOCLOPRAMIDE HYDROCHLORIDE
     Dosage: UNK
     Dates: start: 20180430
  30. APETROL ES [Concomitant]
     Dosage: UNK
     Dates: start: 20180614
  31. DUPHALAC [Concomitant]
     Active Substance: LACTULOSE
     Dosage: UNK
     Dates: start: 20180508
  32. MATRIFEN [Concomitant]
     Active Substance: FENTANYL
     Dosage: STRENGTH: 25 MCG/H 8.4 CM2
     Dates: start: 20180605, end: 20180730
  33. AVELOX [Concomitant]
     Active Substance: MOXIFLOXACIN HYDROCHLORIDE
     Dosage: UNK
     Dates: start: 20180614, end: 20180706
  34. EPINEPHRINE. [Concomitant]
     Active Substance: EPINEPHRINE
     Dosage: UNK
     Dates: start: 20180602
  35. KEYTRUDA [Suspect]
     Active Substance: PEMBROLIZUMAB
     Dosage: UNK
     Dates: start: 20180729
  36. POTASSIUM CHLORIDE. [Concomitant]
     Active Substance: POTASSIUM CHLORIDE
     Dosage: UNK
     Dates: start: 20180604
  37. AVELOX [Concomitant]
     Active Substance: MOXIFLOXACIN HYDROCHLORIDE
     Dosage: UNK
     Dates: start: 20180601, end: 20180614
  38. DEXTROSE. [Concomitant]
     Active Substance: DEXTROSE
     Dosage: 200 ML
     Dates: start: 20180512, end: 20180729
  39. ALVERIX [Concomitant]
     Dosage: UNK
     Dates: start: 20180610, end: 20180730
  40. SODIUM CHLORIDE. [Concomitant]
     Active Substance: SODIUM CHLORIDE
     Dosage: 1 L, (BTL)
     Dates: start: 20180430

REACTIONS (4)
  - Biloma [Unknown]
  - Malignant neoplasm progression [Unknown]
  - Product use in unapproved indication [Unknown]
  - Tumour associated fever [Unknown]

NARRATIVE: CASE EVENT DATE: 2018
